FAERS Safety Report 10775368 (Version 1)
Quarter: 2015Q1

REPORT INFORMATION
  Report Type: Spontaneous
  Country: US (occurrence: None)
  Receive Date: 20150204
  Receipt Date: 20150204
  Transmission Date: 20150721
  Serious: Yes (Other)
  Sender: FDA-Public Use
  Company Number: 2710479

PATIENT
  Age: 37 Year
  Sex: Female
  Weight: 101.82 kg

DRUGS (1)
  1. PACLITAXEL FOR INJECTION (PACLITAXEL) [Suspect]
     Active Substance: PACLITAXEL
     Indication: BREAST CANCER
     Dosage: 350 MG MILLIGRAMS INTRAVENOUS (NOT OTHERWISE SPECIFIED)
     Route: 042
     Dates: start: 20141210, end: 20150107

REACTIONS (6)
  - Chest discomfort [None]
  - Flushing [None]
  - Dyspnoea [None]
  - Feeling hot [None]
  - Feeling cold [None]
  - Back pain [None]

NARRATIVE: CASE EVENT DATE: 20150107
